FAERS Safety Report 15378970 (Version 1)
Quarter: 2018Q3

REPORT INFORMATION
  Report Type: Spontaneous
  Country: RU (occurrence: RU)
  Receive Date: 20180913
  Receipt Date: 20180913
  Transmission Date: 20181010
  Serious: Yes (Hospitalization, Other)
  Sender: FDA-Public Use
  Company Number: RU-SA-2018SA250965

PATIENT
  Age: 68 Year
  Sex: Female

DRUGS (3)
  1. EVOLTRA [Suspect]
     Active Substance: CLOFARABINE
     Dosage: 50 (250 MG/WEEK)MG/54 MG/10MG
     Route: 042
     Dates: start: 20170206, end: 20180227
  2. MERCAPTOPURINE. [Suspect]
     Active Substance: MERCAPTOPURINE
     Dosage: 50 (250 MG/WEEK)MG/54MG/10MG
     Dates: start: 20170206, end: 20180227
  3. METHOTREXATE. [Suspect]
     Active Substance: METHOTREXATE
     Dosage: 50 (250 MG/WEEK)MG/54MG/10 MG;PER OS
     Dates: start: 20170206, end: 20180227

REACTIONS (4)
  - Intestinal obstruction [Recovered/Resolved with Sequelae]
  - Epstein-Barr virus test positive [Recovered/Resolved with Sequelae]
  - Urinary tract infection [Recovered/Resolved with Sequelae]
  - Cytomegalovirus infection [Recovered/Resolved with Sequelae]

NARRATIVE: CASE EVENT DATE: 20180304
